FAERS Safety Report 5535062-1 (Version None)
Quarter: 2007Q4

REPORT INFORMATION
  Report Type: 
  Country: None (occurrence: None)
  Receive Date: 20071203
  Receipt Date: 20071119
  Transmission Date: 20080405
  Serious: Yes (Hospitalization, Other)
  Sender: FDA-Public Use
  Company Number: 2007BI014413

PATIENT
  Age: 61 Year
  Sex: Female

DRUGS (1)
  1. AVONEX [Suspect]
     Indication: DRUG USE FOR UNKNOWN INDICATION
     Dosage: IM
     Route: 030
     Dates: start: 20021101

REACTIONS (10)
  - ASTHMA [None]
  - DIABETES MELLITUS [None]
  - DYSKINESIA [None]
  - GALLBLADDER OPERATION [None]
  - GASTROENTERITIS VIRAL [None]
  - NEUROGENIC BLADDER [None]
  - PANCREATITIS ACUTE [None]
  - PNEUMONIA [None]
  - RENAL DISORDER [None]
  - WEIGHT DECREASED [None]
